FAERS Safety Report 9132734 (Version 1)
Quarter: 2013Q1

REPORT INFORMATION
  Report Type: Spontaneous
  Country: US (occurrence: US)
  Receive Date: 20130301
  Receipt Date: 20130301
  Transmission Date: 20140127
  Serious: No
  Sender: FDA-Public Use
  Company Number: US-BAYER-2013-026113

PATIENT
  Age: 61 Year
  Sex: Female

DRUGS (5)
  1. ALEVE CAPLET/TABLET,MIDOL EXTENDED RELIEF CAPLET [Suspect]
     Indication: MYALGIA
     Dosage: 1 DF, BID
     Route: 048
     Dates: start: 20130220, end: 20130220
  2. ALEVE CAPLET/TABLET,MIDOL EXTENDED RELIEF CAPLET [Suspect]
     Indication: MYALGIA
     Dosage: UNK
  3. ZINC [Concomitant]
     Dosage: UNK
  4. VITAMIN C [Concomitant]
     Dosage: UNK
  5. AMLODIPINE [Concomitant]
     Dosage: UNK

REACTIONS (1)
  - Insomnia [Not Recovered/Not Resolved]
